FAERS Safety Report 9619918 (Version 4)
Quarter: 2013Q4

REPORT INFORMATION
  Report Type: Spontaneous
  Country: GB (occurrence: GB)
  Receive Date: 20131014
  Receipt Date: 20131226
  Transmission Date: 20140711
  Serious: Yes (Hospitalization)
  Sender: FDA-Public Use
  Company Number: GB-WATSON-2013-18455

PATIENT
  Age: 72 Year
  Sex: Female

DRUGS (14)
  1. DOXORUBICIN (UNKNOWN) [Suspect]
     Indication: PRODUCT USED FOR UNKNOWN INDICATION
     Dosage: 84 MG, UNK; DOSAGE FORM: UNSPECIFIED
     Route: 065
     Dates: start: 20130726, end: 20130927
  2. DOMPERIDONE (UNKNOWN) [Suspect]
     Indication: PRODUCT USED FOR UNKNOWN INDICATION
     Dosage: 10 MG, UNK; DOSAGE FORM: UNSPECIFIED
     Route: 048
     Dates: start: 20130726, end: 20130918
  3. CYCLOPHOSPHAMIDE (UNKNOWN) [Suspect]
     Indication: PRODUCT USED FOR UNKNOWN INDICATION
     Dosage: 1200 MG, UNKNOWN; DOSAGE FORM: UNSPECIFIED
     Route: 065
     Dates: start: 20130726, end: 20130927
  4. VINCRISTINE (UNKNOWN) [Suspect]
     Indication: PRODUCT USED FOR UNKNOWN INDICATION
     Dosage: 2 MG, UNKNOWN; DOSAGE FORM: UNSPECIFIED
     Route: 065
     Dates: start: 20130726, end: 20130927
  5. PREDNISOLONE (UNKNOWN) [Suspect]
     Indication: PRODUCT USED FOR UNKNOWN INDICATION
     Dosage: 100 MG, UNKNOWN; DOSAGE FORM: UNSPECIFIED
     Route: 065
     Dates: start: 20130726, end: 20131001
  6. RITUXIMAB [Suspect]
     Indication: PRODUCT USED FOR UNKNOWN INDICATION
     Dosage: 630 MG, UNKNOWN, DOSAGE FORM: UNSPECIFIED
     Route: 065
     Dates: start: 20130726, end: 20130927
  7. BORTEZOMIB [Suspect]
     Indication: PRODUCT USED FOR UNKNOWN INDICATION
     Dosage: 2.2 MG, UNKNOWN, DOSAGE FORM: UNSPECIFIED
     Route: 065
     Dates: start: 20130826, end: 20131004
  8. LEVOTHYROXINE [Concomitant]
     Indication: PRODUCT USED FOR UNKNOWN INDICATION
     Dosage: 50 MG, UNKNOWN, DOSAGE FORM: UNSPECIFIED
     Route: 048
     Dates: start: 20120525
  9. FUROSEMIDE [Concomitant]
     Indication: PRODUCT USED FOR UNKNOWN INDICATION
     Dosage: 40 MG, UNKNOWN, DOSAGE FORM: UNSPECIFIED
     Route: 048
     Dates: start: 20100428, end: 20130918
  10. CYCLIZINE [Concomitant]
     Indication: PRODUCT USED FOR UNKNOWN INDICATION
     Dosage: UNK, DOSAGE FORM: UNSPECIFIED
     Route: 048
     Dates: start: 20130814, end: 20130918
  11. BISOPROLOL [Concomitant]
     Indication: PRODUCT USED FOR UNKNOWN INDICATION
     Dosage: 5 MG, UNKNOWN, DOSAGE FORM: UNSPECIFIED
     Route: 065
     Dates: start: 20100428
  12. AMIODARONE [Concomitant]
     Indication: PRODUCT USED FOR UNKNOWN INDICATION
     Dosage: 100 MG, UNKNOWN, DOSAGE FORM: UNSPECIFIED
     Route: 048
     Dates: start: 20110303
  13. FRAGMIN [Concomitant]
     Indication: PRODUCT USED FOR UNKNOWN INDICATION
     Dosage: UNK, DOSAGE FORM: UNKNOWN, 15,000
     Route: 058
     Dates: start: 201307, end: 20130918
  14. ALLOPURINOL [Concomitant]
     Indication: PRODUCT USED FOR UNKNOWN INDICATION
     Dosage: UNK, DOSAGE FORM: UNKNOWN
     Route: 048
     Dates: start: 20130726, end: 20130918

REACTIONS (9)
  - Sepsis [Not Recovered/Not Resolved]
  - Neutropenia [Not Recovered/Not Resolved]
  - Dehydration [Not Recovered/Not Resolved]
  - Hypotension [Not Recovered/Not Resolved]
  - Nausea [Unknown]
  - Vomiting [Unknown]
  - Oropharyngeal pain [Unknown]
  - Diarrhoea [Unknown]
  - Syncope [Unknown]
